FAERS Safety Report 17152191 (Version 1)
Quarter: 2019Q4

REPORT INFORMATION
  Report Type: Spontaneous
  Country: NL (occurrence: FR)
  Receive Date: 20191213
  Receipt Date: 20191213
  Transmission Date: 20200122
  Serious: Yes (Other)
  Sender: FDA-Public Use
  Company Number: FR-FRESENIUS KABI-FK201913534

PATIENT
  Age: 48 Year
  Sex: Female
  Weight: 73 kg

DRUGS (2)
  1. CARBOPLATIN. [Concomitant]
     Active Substance: CARBOPLATIN
     Indication: ADENOCARCINOMA OF THE CERVIX
     Route: 042
     Dates: start: 20170803, end: 20170803
  2. PACLITAXEL (MANUFACTURER UNKNOWN) [Suspect]
     Active Substance: PACLITAXEL
     Indication: ADENOCARCINOMA OF THE CERVIX
     Route: 042
     Dates: start: 20170803, end: 20170803

REACTIONS (3)
  - Rash erythematous [Recovered/Resolved]
  - Dyspnoea [Recovered/Resolved]
  - Oxygen saturation decreased [Recovered/Resolved]

NARRATIVE: CASE EVENT DATE: 20170803
